FAERS Safety Report 9004978 (Version 3)
Quarter: 2013Q2

REPORT INFORMATION
  Report Type: Spontaneous
  Country: US (occurrence: US)
  Receive Date: 20130109
  Receipt Date: 20130404
  Transmission Date: 20140414
  Serious: No
  Sender: FDA-Public Use
  Company Number: US-009507513-1301USA003156

PATIENT
  Age: 30 Year
  Sex: Female
  Weight: 61.68 kg

DRUGS (3)
  1. NEXPLANON [Suspect]
     Indication: CONTRACEPTION
     Dosage: 68 MG
     Route: 023
     Dates: start: 20121231, end: 201301
  2. NEXPLANON [Suspect]
     Dosage: UNK
     Route: 059
     Dates: end: 20121231
  3. NEXPLANON [Suspect]
     Dosage: UNK
     Route: 059
     Dates: start: 20130401

REACTIONS (3)
  - Device expulsion [Unknown]
  - No adverse event [Unknown]
  - Device dislocation [Unknown]
